FAERS Safety Report 13919388 (Version 1)
Quarter: 2017Q3

REPORT INFORMATION
  Report Type: Spontaneous
  Country: FR (occurrence: FR)
  Receive Date: 20170830
  Receipt Date: 20170830
  Transmission Date: 20171127
  Serious: Yes (Hospitalization)
  Sender: FDA-Public Use
  Company Number: FR-ACCORD-057724

PATIENT
  Age: 69 Year
  Sex: Female

DRUGS (4)
  1. METHYLPREDNISOLONE MYLAN [Concomitant]
     Active Substance: METHYLPREDNISOLONE
     Dosage: IN A SINGLE DAY
     Route: 042
     Dates: start: 20170516
  2. DOXORUBICINE TEVA [Concomitant]
     Active Substance: DOXORUBICIN
     Indication: OVARIAN EPITHELIAL CANCER
     Dosage: IN A SINGLE DAY
     Route: 042
     Dates: start: 20170516, end: 20170516
  3. ONDANSETRON ACCORD [Concomitant]
     Active Substance: ONDANSETRON
     Dosage: IN A SINGLE DAY
     Dates: start: 20170516
  4. CARBOPLATINE ACCORD [Suspect]
     Active Substance: CARBOPLATIN
     Indication: OVARIAN EPITHELIAL CANCER
     Dosage: ONE SINGLE DAY
     Route: 042
     Dates: start: 20170516, end: 20170516

REACTIONS (3)
  - Oral discomfort [Recovered/Resolved]
  - Pharyngeal paraesthesia [Recovered/Resolved]
  - Hypotension [Unknown]

NARRATIVE: CASE EVENT DATE: 20170516
